FAERS Safety Report 16481873 (Version 1)
Quarter: 2019Q2

REPORT INFORMATION
  Report Type: Spontaneous
  Country: CA (occurrence: CA)
  Receive Date: 20190627
  Receipt Date: 20190627
  Transmission Date: 20190711
  Serious: Yes (Hospitalization)
  Sender: FDA-Public Use
  Company Number: CA-AUROBINDO-AUR-APL-2019-035415

PATIENT

DRUGS (8)
  1. OLANZAPINE. [Suspect]
     Active Substance: OLANZAPINE
     Indication: SCHIZOAFFECTIVE DISORDER
     Dosage: UNK
     Route: 065
  2. ABILIFY MAINTENA [Suspect]
     Active Substance: ARIPIPRAZOLE
     Indication: BIPOLAR DISORDER
  3. ABILIFY MAINTENA [Suspect]
     Active Substance: ARIPIPRAZOLE
     Indication: BIPOLAR DISORDER
  4. ABILIFY MAINTENA [Suspect]
     Active Substance: ARIPIPRAZOLE
     Indication: SCHIZOAFFECTIVE DISORDER
     Dosage: UNK
     Route: 065
  5. LATUDA [Suspect]
     Active Substance: LURASIDONE HYDROCHLORIDE
     Indication: BIPOLAR DISORDER
     Dosage: UNK
     Route: 065
  6. OLANZAPINE. [Suspect]
     Active Substance: OLANZAPINE
     Indication: BIPOLAR DISORDER
     Dosage: UNK (TABLET)
     Route: 065
  7. ABILIFY MAINTENA [Suspect]
     Active Substance: ARIPIPRAZOLE
     Indication: SCHIZOAFFECTIVE DISORDER
     Dosage: 400 MILLIGRAM (KIT)
     Route: 065
  8. LATUDA [Suspect]
     Active Substance: LURASIDONE HYDROCHLORIDE
     Indication: SCHIZOAFFECTIVE DISORDER
     Dosage: UNK
     Route: 065

REACTIONS (4)
  - Depression [Unknown]
  - Psychotic disorder [Unknown]
  - Weight decreased [Unknown]
  - Hallucination [Unknown]
